FAERS Safety Report 6439002-2 (Version None)
Quarter: 2009Q4

REPORT INFORMATION
  Report Type: 
  Country: None (occurrence: None)
  Receive Date: 20091113
  Receipt Date: 20091109
  Transmission Date: 20100525
  Serious: Yes (Life-Threatening, Hospitalization, Other)
  Sender: FDA-Public Use
  Company Number: GB-ROCHE-649893

PATIENT
  Sex: Male
  Weight: 85 kg

DRUGS (11)
  1. KYTRIL [Suspect]
     Indication: ANTIEMETIC SUPPORTIVE CARE
     Dosage: INDICATION REPORTED AS ANTIEMETIC PRIOR TO CHEMO
     Route: 065
     Dates: start: 20090803, end: 20090803
  2. MABTHERA [Suspect]
     Indication: NON-HODGKIN'S LYMPHOMA
     Route: 065
     Dates: start: 20090725
  3. VINCRISTINE [Concomitant]
     Indication: LYMPHOMA
     Dosage: REPORTED AS PART OF R-CHOP THERAPY
     Dates: start: 20090803
  4. CYCLOPHOSPHAMIDE [Concomitant]
     Indication: LYMPHOMA
     Dosage: REPORTED AS PART OF R-CHOP THERAPY
     Dates: start: 20090803
  5. PREDNISOLONE [Concomitant]
     Indication: LYMPHOMA
     Dosage: REPORTED AS PART OF R-CHOP THERAPY
     Dates: start: 20090803
  6. PIRITON [Concomitant]
     Dosage: INDICATION REPORTED AS PREMED
     Route: 042
     Dates: start: 20090803, end: 20090803
  7. DOXORUBICIN HCL [Concomitant]
     Indication: LYMPHOMA
     Dosage: REPORTED AS PART OF R-CHOP THERAPY
     Dates: start: 20090803
  8. HYDROCORTISONE [Concomitant]
     Dosage: INDICATION REPORTED AS PRE MED
     Route: 042
     Dates: start: 20090803, end: 20090803
  9. OMEPRAZOLE [Concomitant]
     Route: 048
  10. ALLOPURINOL [Concomitant]
     Route: 048
  11. ASPIRIN [Concomitant]
     Route: 048

REACTIONS (5)
  - BRADYCARDIA [None]
  - CIRCULATORY COLLAPSE [None]
  - DIZZINESS [None]
  - HYPOTENSION [None]
  - PRESYNCOPE [None]
